FAERS Safety Report 7006054-0 (Version None)
Quarter: 2010Q3

REPORT INFORMATION
  Report Type: 
  Country: None (occurrence: None)
  Receive Date: 20100917
  Receipt Date: 20100907
  Transmission Date: 20110219
  Serious: Yes (Other)
  Sender: FDA-Public Use
  Company Number: LEO-2010-00834

PATIENT
  Age: 39 Year
  Sex: Female
  Weight: 78.3 kg

DRUGS (1)
  1. INNOHEP [Suspect]
     Indication: PRODUCT USED FOR UNKNOWN INDICATION
     Dosage: 19000 IU (19000 IU,1 IN D),SUBCUTANEOUS
     Route: 058
     Dates: start: 20100719, end: 20100721

REACTIONS (3)
  - DRUG EXPOSURE DURING PREGNANCY [None]
  - NEEDLE ISSUE [None]
  - PREMATURE LABOUR [None]
